FAERS Safety Report 7515368-7 (Version None)
Quarter: 2011Q2

REPORT INFORMATION
  Report Type: 
  Country: None (occurrence: None)
  Receive Date: 20110601
  Receipt Date: 20100622
  Transmission Date: 20111010
  Serious: No
  Sender: FDA-Public Use
  Company Number: US-PFIZER INC-2010078581

PATIENT
  Sex: Male
  Weight: 77 kg

DRUGS (6)
  1. INSULIN DETEMIR [Concomitant]
     Dosage: 36 UNITS, DAILY DURING NIGHTS
  2. PREVACID [Concomitant]
     Indication: DYSPEPSIA
     Dosage: UNK
  3. NOVOLOG [Concomitant]
     Dosage: 15 IU, 3X/DAY DURING THE DAY
  4. CLONAZEPAM [Concomitant]
     Dosage: 2 MG, 1X/DAY AT BED TIME
  5. CHANTIX [Suspect]
     Indication: SMOKING CESSATION THERAPY
     Dosage: 0.5 MG, 1X/DAY
     Route: 048
     Dates: start: 20100601
  6. CHANTIX [Suspect]
     Dosage: 1 MG, 2X/DAY
     Route: 048
     Dates: start: 20100601, end: 20100615

REACTIONS (1)
  - ANGER [None]
